FAERS Safety Report 5035296-9 (Version None)
Quarter: 2006Q2

REPORT INFORMATION
  Report Type: 
  Country: None (occurrence: None)
  Receive Date: 20060622
  Receipt Date: 20060622
  Transmission Date: 20061013
  Serious: Yes (Hospitalization)
  Sender: FDA-Public Use
  Company Number: None

PATIENT
  Sex: Male
  Weight: 85.7 kg

DRUGS (6)
  1. CYCLOPHOSPHAMIDE [Suspect]
     Dosage: 795 MG
     Dates: end: 20060610
  2. DOXORUBICIN HCL [Suspect]
     Dosage: 84MG
     Dates: end: 20060609
  3. ETOPOSIDE [Suspect]
     Dosage: 424 MG
     Dates: end: 20060609
  4. G-CSF (FILGRASTIM , AMGEN) [Suspect]
     Dosage: 6 MG
     Dates: end: 20060612
  5. PREDNISONE [Suspect]
     Dosage: 600 MG
     Dates: end: 20060610
  6. VINCRISTINE SULFATE [Suspect]
     Dosage: 3.4 MG
     Dates: end: 20060609

REACTIONS (4)
  - FEBRILE NEUTROPENIA [None]
  - HAEMOLYTIC ANAEMIA [None]
  - PLATELET COUNT DECREASED [None]
  - WHITE BLOOD CELL COUNT DECREASED [None]
